FAERS Safety Report 6357449-X (Version None)
Quarter: 2009Q3

REPORT INFORMATION
  Report Type: 
  Country: None (occurrence: None)
  Receive Date: 20090916
  Receipt Date: 20090909
  Transmission Date: 20100115
  Serious: No
  Sender: FDA-Public Use
  Company Number: JP-EISAI INC.-E2020-05094-SPO-JP

PATIENT
  Sex: Female

DRUGS (4)
  1. ARICEPT [Suspect]
     Indication: DEMENTIA ALZHEIMER'S TYPE
     Route: 048
     Dates: start: 20081218, end: 20081231
  2. ARICEPT [Suspect]
     Route: 048
     Dates: start: 20090101, end: 20090330
  3. ARICEPT [Suspect]
     Route: 048
     Dates: start: 20090331
  4. LOCHOL [Concomitant]
     Route: 048
     Dates: start: 20090331

REACTIONS (2)
  - GAIT DISTURBANCE [None]
  - MIOSIS [None]
